FAERS Safety Report 19610165 (Version 1)
Quarter: 2021Q3

REPORT INFORMATION
  Report Type: Report from Study
  Country: None (occurrence: US)
  Receive Date: 20210726
  Receipt Date: 20210726
  Transmission Date: 20211014
  Serious: Yes (Hospitalization)
  Sender: FDA-Public Use
  Company Number: US-CLINIGEN GROUP PLC/ CLINIGEN HEALTHCARE LTD-US-CLGN-21-00411

PATIENT
  Age: 55 Year
  Sex: Male
  Weight: 123 kg

DRUGS (6)
  1. CYCLOPHOSPHAMIDE. [Suspect]
     Active Substance: CYCLOPHOSPHAMIDE
     Indication: LUNG NEOPLASM MALIGNANT
     Route: 042
     Dates: start: 20201229, end: 20201230
  2. PEMBROLIZUMAB. [Suspect]
     Active Substance: PEMBROLIZUMAB
     Indication: LUNG NEOPLASM MALIGNANT
     Route: 042
     Dates: start: 20201216, end: 20201216
  3. LN?144, LN?145 [Suspect]
     Active Substance: LIFILEUCEL
     Indication: LUNG NEOPLASM MALIGNANT
     Route: 042
     Dates: start: 20210105, end: 20210105
  4. LN?145?S1 [Suspect]
     Active Substance: INVESTIGATIONAL PRODUCT
  5. PROLEUKIN [Suspect]
     Active Substance: ALDESLEUKIN
     Indication: LUNG NEOPLASM MALIGNANT
     Route: 042
     Dates: start: 20210106, end: 20210107
  6. FLUDARABINE [Suspect]
     Active Substance: FLUDARABINE PHOSPHATE
     Indication: LUNG NEOPLASM MALIGNANT
     Route: 042
     Dates: start: 20201231, end: 20210104

REACTIONS (3)
  - Pulmonary oedema [Recovered/Resolved with Sequelae]
  - Atrial fibrillation [Recovered/Resolved with Sequelae]
  - Non-cardiac chest pain [Recovered/Resolved]

NARRATIVE: CASE EVENT DATE: 20201227
